FAERS Safety Report 4789517-8 (Version None)
Quarter: 2005Q4

REPORT INFORMATION
  Report Type: 
  Country: None (occurrence: None)
  Receive Date: 20051005
  Receipt Date: 20051005
  Transmission Date: 20060501
  Serious: Yes (Life-Threatening, Hospitalization)
  Sender: FDA-Public Use
  Company Number: None

PATIENT
  Age: 63 Year
  Sex: Female

DRUGS (13)
  1. CLOPIDIGREL [Suspect]
     Indication: THROMBOSIS PROPHYLAXIS
     Dosage: 75 MG PO QD
     Route: 048
  2. ASPIRIN [Suspect]
     Indication: THROMBOSIS PROPHYLAXIS
     Dosage: 325 MG PO QD
     Route: 048
  3. INSULIN [Concomitant]
  4. FLUTICASONE [Concomitant]
  5. ALBUTEROL [Concomitant]
  6. NIFEDIPINE [Concomitant]
  7. ISOSORBIDE MONONITRATE [Concomitant]
  8. METOPROLOL [Concomitant]
  9. DIGOXIN [Concomitant]
  10. LISINOPRIL [Concomitant]
  11. LANSOPRAZOLE [Concomitant]
  12. FUROSEMIDE [Concomitant]
  13. PRAVASTATIN [Concomitant]

REACTIONS (7)
  - CONDITION AGGRAVATED [None]
  - HAEMORRHAGE [None]
  - LOWER GASTROINTESTINAL HAEMORRHAGE [None]
  - MENTAL STATUS CHANGES [None]
  - PYREXIA [None]
  - RESPIRATORY DISTRESS [None]
  - WHITE BLOOD CELL COUNT INCREASED [None]
